FAERS Safety Report 10158079 (Version 1)
Quarter: 2014Q2

REPORT INFORMATION
  Report Type: Spontaneous
  Country: US (occurrence: US)
  Receive Date: 20140507
  Receipt Date: 20140507
  Transmission Date: 20141212
  Serious: No
  Sender: FDA-Public Use
  Company Number: US-BAYER-2014-061470

PATIENT
  Age: 62 Year
  Sex: Female
  Weight: 52.61 kg

DRUGS (4)
  1. ONE A DAY WOMEN^S [Suspect]
     Dosage: 1 DF, QD WITH FOOD
     Route: 048
     Dates: start: 2013, end: 2013
  2. ONE A DAY ENERGY [Suspect]
     Dosage: 1 DF, QD WITH FOOD
     Route: 048
     Dates: start: 2013, end: 2013
  3. ALEVE CAPLET [Suspect]
     Indication: ARTHRITIS
     Dosage: 1 DF, PRN
     Route: 048
     Dates: start: 2012
  4. VITAMIN D3 [Concomitant]

REACTIONS (3)
  - Dysgeusia [Recovered/Resolved]
  - Feeling jittery [Recovered/Resolved]
  - Drug ineffective [None]
